FAERS Safety Report 5924803-7 (Version None)
Quarter: 2008Q4

REPORT INFORMATION
  Report Type: 
  Country: None (occurrence: None)
  Receive Date: 20081017
  Receipt Date: 20081017
  Transmission Date: 20090506
  Serious: No
  Sender: FDA-Public Use
  Company Number: None

PATIENT
  Sex: Female
  Weight: 72.5755 kg

DRUGS (11)
  1. ZOFRAN ODT [Suspect]
     Indication: NAUSEA
     Dosage: ONE TAB
     Dates: start: 20081001
  2. VENLAFAXINE HCL [Concomitant]
  3. TRAMADOL HCL [Concomitant]
  4. CLONAZEPAM [Concomitant]
  5. METOPROLOL TARTRATE [Concomitant]
  6. DOXAZOSIN MESYLATE [Concomitant]
  7. LOTREL [Concomitant]
  8. FUROSEMIDE [Concomitant]
  9. INSULIN [Concomitant]
  10. ASPIRIN [Concomitant]
  11. POTASSIUM CHLORIDE [Concomitant]

REACTIONS (1)
  - HALLUCINATION, VISUAL [None]
